FAERS Safety Report 21179754 (Version 1)
Quarter: 2022Q3

REPORT INFORMATION
  Report Type: Spontaneous
  Country: KR (occurrence: KR)
  Receive Date: 20220805
  Receipt Date: 20220805
  Transmission Date: 20221027
  Serious: Yes (Hospitalization)
  Sender: FDA-Public Use
  Company Number: KR-JNJFOC-20220752958

PATIENT
  Sex: Female

DRUGS (8)
  1. SPRAVATO [Suspect]
     Active Substance: ESKETAMINE
     Indication: Major depression
     Dates: start: 20201110
  2. SPRAVATO [Suspect]
     Active Substance: ESKETAMINE
     Indication: Suicidal ideation
     Dates: start: 202103
  3. SPRAVATO [Suspect]
     Active Substance: ESKETAMINE
     Dates: start: 202109
  4. SPRAVATO [Suspect]
     Active Substance: ESKETAMINE
     Dates: start: 202204
  5. REMERON [Concomitant]
     Active Substance: MIRTAZAPINE
  6. BUSPAR [Concomitant]
     Active Substance: BUSPIRONE HYDROCHLORIDE
  7. AGOMELATINE [Concomitant]
     Active Substance: AGOMELATINE
     Dates: start: 202202
  8. AGOMELATINE [Concomitant]
     Active Substance: AGOMELATINE
     Dates: start: 202203

REACTIONS (8)
  - Intentional self-injury [Unknown]
  - Panic disorder [Unknown]
  - Insomnia [Unknown]
  - Condition aggravated [Unknown]
  - Confusional state [Unknown]
  - Somnolence [Recovered/Resolved]
  - Depression [Unknown]
  - Dizziness [Recovered/Resolved]

NARRATIVE: CASE EVENT DATE: 20201124
